FAERS Safety Report 9866708 (Version 1)
Quarter: 2014Q1

REPORT INFORMATION
  Report Type: Spontaneous
  Country: US (occurrence: US)
  Receive Date: 20140204
  Receipt Date: 20140204
  Transmission Date: 20141002
  Serious: No
  Sender: FDA-Public Use
  Company Number: US-BIOGENIDEC-2014BI008759

PATIENT
  Age: 49 Year
  Sex: Female

DRUGS (3)
  1. TECFIDERA [Suspect]
     Indication: MULTIPLE SCLEROSIS
     Route: 048
     Dates: start: 20131201
  2. TECFIDERA [Suspect]
     Indication: MULTIPLE SCLEROSIS
     Route: 048
     Dates: start: 20140122
  3. PEPTOBISMOL [Concomitant]

REACTIONS (7)
  - Prescribed underdose [Recovered/Resolved]
  - Headache [Unknown]
  - Dizziness [Unknown]
  - Gait disturbance [Unknown]
  - Eye pain [Unknown]
  - Vision blurred [Unknown]
  - Flushing [Unknown]
